FAERS Safety Report 6652741-3 (Version None)
Quarter: 2010Q1

REPORT INFORMATION
  Report Type: 
  Country: None (occurrence: None)
  Receive Date: 20100326
  Receipt Date: 20100311
  Transmission Date: 20100710
  Serious: Yes (Death, Hospitalization, Other)
  Sender: FDA-Public Use
  Company Number: US-ELI_LILLY_AND_COMPANY-US201001002598

PATIENT
  Sex: Female
  Weight: 47.166 kg

DRUGS (1)
  1. FORTEO [Suspect]
     Indication: OSTEOPOROSIS
     Dosage: 20 UG, DAILY (1/D)
     Dates: start: 20090401, end: 20091101

REACTIONS (7)
  - DECREASED APPETITE [None]
  - DEHYDRATION [None]
  - PNEUMONIA [None]
  - POSTOPERATIVE WOUND INFECTION [None]
  - PULMONARY FIBROSIS [None]
  - RESPIRATORY FAILURE [None]
  - URINARY TRACT INFECTION [None]
